APPROVED DRUG PRODUCT: THIORIDAZINE HYDROCHLORIDE
Active Ingredient: THIORIDAZINE HYDROCHLORIDE
Strength: 100MG/ML
Dosage Form/Route: CONCENTRATE;ORAL
Application: A088227 | Product #001
Applicant: WOCKHARDT EU OPERATIONS (SWISS) AG
Approved: Jul 5, 1983 | RLD: No | RS: No | Type: DISCN